FAERS Safety Report 5893971-8 (Version None)
Quarter: 2008Q3

REPORT INFORMATION
  Report Type: 
  Country: None (occurrence: None)
  Receive Date: 20080923
  Receipt Date: 20080908
  Transmission Date: 20090109
  Serious: No
  Sender: FDA-Public Use
  Company Number: US-B.I. PHARMACEUTICALS,INC./RIDGEFIELD-2008-BP-14246BP

PATIENT
  Age: 73 Year
  Sex: Female

DRUGS (4)
  1. MIRAPEX [Suspect]
     Indication: RESTLESS LEGS SYNDROME
     Dosage: .125MG
     Route: 048
     Dates: start: 20080902
  2. LASIX [Concomitant]
  3. BONIVA [Concomitant]
  4. LOVESTATIN [Concomitant]

REACTIONS (2)
  - GENITAL RASH [None]
  - RASH [None]
